FAERS Safety Report 16862434 (Version 1)
Quarter: 2019Q3

REPORT INFORMATION
  Report Type: Spontaneous
  Country: US (occurrence: US)
  Receive Date: 20190927
  Receipt Date: 20190927
  Transmission Date: 20191005
  Serious: Yes (Other)
  Sender: FDA-Public Use
  Company Number: US-AKORN PHARMACEUTICALS-2019AKN02011

PATIENT
  Age: 19 Year
  Sex: Male

DRUGS (2)
  1. MYORISAN [Suspect]
     Active Substance: ISOTRETINOIN
     Dosage: UNK
     Dates: start: 20190807, end: 20190912
  2. AMNESTEEM [Suspect]
     Active Substance: ISOTRETINOIN
     Dosage: UNK
     Dates: start: 20190904, end: 20190912

REACTIONS (3)
  - Road traffic accident [Recovered/Resolved]
  - Suicidal ideation [Unknown]
  - Suicide attempt [Recovered/Resolved]

NARRATIVE: CASE EVENT DATE: 2019
